FAERS Safety Report 4900252-5 (Version None)
Quarter: 2006Q1

REPORT INFORMATION
  Report Type: 
  Country: None (occurrence: None)
  Receive Date: 20060201
  Receipt Date: 20060119
  Transmission Date: 20060701
  Serious: Yes (Hospitalization)
  Sender: FDA-Public Use
  Company Number: 2006011651

PATIENT
  Age: 68 Year
  Sex: Female
  Weight: 102.7 kg

DRUGS (6)
  1. ELLENCE [Suspect]
     Indication: BREAST CANCER
     Dosage: 154 MG (1 IN 21 D), INTRAVENOUS
     Route: 042
     Dates: start: 20040908, end: 20050103
  2. PLACEBO (PLACEBO) [Suspect]
     Indication: BREAST CANCER
     Dosage: 0 MG (0 MG, 2 IN 1 D)
     Dates: start: 20040908, end: 20041220
  3. FLUOROURACIL [Suspect]
     Indication: BREAST CANCER
     Dosage: 820 MG (1 IN 21 D), INTRAVENOUS
     Route: 042
     Dates: start: 20040908, end: 20050103
  4. CYCLOPHOSPHAMIDE [Suspect]
     Indication: BREAST CANCER
     Dosage: 820 MG (1 IN 21 D), INTRAVENOUS
     Route: 042
     Dates: start: 20040908, end: 20050103
  5. SYNTHROID [Concomitant]
  6. LISINOPRIL [Concomitant]

REACTIONS (8)
  - BREATH SOUNDS ABNORMAL [None]
  - CARDIOMYOPATHY [None]
  - EJECTION FRACTION DECREASED [None]
  - PERFORMANCE STATUS DECREASED [None]
  - PERICARDIAL DISEASE [None]
  - PERICARDIAL EFFUSION [None]
  - PERICARDITIS CONSTRICTIVE [None]
  - PLEURAL EFFUSION [None]
